FAERS Safety Report 6720237-6 (Version None)
Quarter: 2010Q2

REPORT INFORMATION
  Report Type: 
  Country: None (occurrence: None)
  Receive Date: 20100511
  Receipt Date: 20100428
  Transmission Date: 20101027
  Serious: Yes (Other)
  Sender: FDA-Public Use
  Company Number: PHHY2010JP03968

PATIENT
  Sex: Male
  Weight: 65 kg

DRUGS (11)
  1. NEORAL [Suspect]
     Indication: PSORIASIS
     Dosage: 200 MG/DAILY
     Route: 048
     Dates: start: 20080226, end: 20080701
  2. NEORAL [Suspect]
     Dosage: 150 MG DAILY
     Route: 048
     Dates: start: 20080702
  3. NEORAL [Suspect]
     Dosage: 50 MG, BID
     Route: 048
     Dates: start: 20080730, end: 20080826
  4. NEORAL [Suspect]
     Dosage: 50 MG DAILY
     Route: 048
     Dates: start: 20080827, end: 20090714
  5. NEORAL [Suspect]
     Dosage: 40 MG/DAY
     Route: 048
     Dates: start: 20090715, end: 20100121
  6. NEORAL [Suspect]
     Dosage: 20 MG DAILY
     Route: 048
     Dates: start: 20100122, end: 20100126
  7. NEORAL [Suspect]
     Dosage: 10 MG DAILY
     Route: 048
     Dates: start: 20100127, end: 20100203
  8. GASTER D [Concomitant]
     Route: 048
  9. TENORMIN [Concomitant]
     Dosage: UNK
     Route: 048
  10. DIOVAN [Concomitant]
     Dosage: UNK
     Route: 048
  11. PITAVASTATIN CALCIUM [Concomitant]
     Dosage: UNK
     Route: 048

REACTIONS (8)
  - ALANINE AMINOTRANSFERASE INCREASED [None]
  - ASPARTATE AMINOTRANSFERASE INCREASED [None]
  - BLOOD GLUCOSE INCREASED [None]
  - BLOOD LACTATE DEHYDROGENASE INCREASED [None]
  - COLITIS [None]
  - GAMMA-GLUTAMYLTRANSFERASE INCREASED [None]
  - HAEMATOCHEZIA [None]
  - LARGE INTESTINAL ULCER [None]
